FAERS Safety Report 16215037 (Version 1)
Quarter: 2019Q2

REPORT INFORMATION
  Report Type: Report from Study
  Country: None (occurrence: US)
  Receive Date: 20190418
  Receipt Date: 20190418
  Transmission Date: 20190711
  Serious: Yes (Hospitalization, Other)
  Sender: FDA-Public Use
  Company Number: US-ABBVIE-18K-163-2490738-00

PATIENT
  Age: 82 Year
  Sex: Female
  Weight: 59.02 kg

DRUGS (3)
  1. METHOTREXATE. [Concomitant]
     Active Substance: METHOTREXATE
     Indication: RHEUMATOID ARTHRITIS
  2. FOLIC ACID. [Concomitant]
     Active Substance: FOLIC ACID
     Indication: PRODUCT USED FOR UNKNOWN INDICATION
  3. HUMIRA [Suspect]
     Active Substance: ADALIMUMAB
     Indication: RHEUMATOID ARTHRITIS
     Route: 058
     Dates: start: 2001

REACTIONS (14)
  - Hip arthroplasty [Recovered/Resolved]
  - Diuretic therapy [Unknown]
  - Fluid retention [Recovered/Resolved]
  - Therapeutic response shortened [Not Recovered/Not Resolved]
  - Intervertebral disc operation [Recovered/Resolved]
  - Peripheral swelling [Recovered/Resolved]
  - Heart valve incompetence [Not Recovered/Not Resolved]
  - Peripheral swelling [Unknown]
  - Obstruction [Unknown]
  - Knee arthroplasty [Recovered/Resolved]
  - Pneumonia [Unknown]
  - Blister infected [Unknown]
  - Cardiac failure congestive [Not Recovered/Not Resolved]
  - Weight increased [Unknown]

NARRATIVE: CASE EVENT DATE: 201808
